FAERS Safety Report 13639013 (Version 6)
Quarter: 2017Q3

REPORT INFORMATION
  Report Type: Report from Study
  Country: US (occurrence: US)
  Receive Date: 20170609
  Receipt Date: 20170801
  Transmission Date: 20171127
  Serious: Yes (Hospitalization)
  Sender: FDA-Public Use
  Company Number: US-ACTELION-A-US2017-153168

PATIENT
  Age: 76 Year
  Sex: Female
  Weight: 46.71 kg

DRUGS (9)
  1. UPTRAVI [Suspect]
     Active Substance: SELEXIPAG
     Dosage: 400 MCG, UNK
     Route: 048
  2. OPSUMIT [Suspect]
     Active Substance: MACITENTAN
     Indication: PULMONARY ARTERIAL HYPERTENSION
     Dosage: 10 MG, QD
     Route: 048
  3. ADCIRCA [Concomitant]
     Active Substance: TADALAFIL
  4. UPTRAVI [Suspect]
     Active Substance: SELEXIPAG
     Dosage: 600 MCG, BID
     Route: 048
  5. UPTRAVI [Suspect]
     Active Substance: SELEXIPAG
     Dosage: 200 MCG AM, 400 MCG PM
     Route: 048
  6. WARFARIN [Concomitant]
     Active Substance: WARFARIN
  7. UPTRAVI [Suspect]
     Active Substance: SELEXIPAG
     Indication: PULMONARY ARTERIAL HYPERTENSION
     Dosage: UNK
     Route: 048
  8. XARELTO [Concomitant]
     Active Substance: RIVAROXABAN
  9. LETAIRIS [Concomitant]
     Active Substance: AMBRISENTAN

REACTIONS (9)
  - Condition aggravated [Unknown]
  - Contusion [Unknown]
  - Malaise [Unknown]
  - Nausea [Unknown]
  - Haemorrhage [Unknown]
  - Pain in extremity [Unknown]
  - Headache [Unknown]
  - Muscle spasms [Unknown]
  - Diarrhoea [Unknown]
